FAERS Safety Report 6100540-3 (Version None)
Quarter: 2009Q1

REPORT INFORMATION
  Report Type: 
  Country: None (occurrence: None)
  Receive Date: 20090303
  Receipt Date: 20090224
  Transmission Date: 20090719
  Serious: Yes (Other)
  Sender: FDA-Public Use
  Company Number: AU-ASTRAZENECA-2009AP01035

PATIENT
  Sex: Male
  Weight: 85 kg

DRUGS (8)
  1. TENORMIN [Suspect]
     Indication: ARRHYTHMIA
     Route: 048
     Dates: start: 20040101
  2. TENORMIN [Suspect]
     Route: 048
     Dates: start: 20081223, end: 20090206
  3. TENORMIN [Suspect]
     Route: 048
  4. COVERSYL [Concomitant]
  5. PARIET [Concomitant]
  6. LIPIDIL [Concomitant]
     Dates: start: 20070906
  7. DIAMICRON [Concomitant]
  8. GLUCOHEXAL [Concomitant]

REACTIONS (3)
  - ARRHYTHMIA SUPRAVENTRICULAR [None]
  - DRUG INEFFECTIVE [None]
  - VENTRICULAR EXTRASYSTOLES [None]
